FAERS Safety Report 5134393-7 (Version None)
Quarter: 2006Q4

REPORT INFORMATION
  Report Type: 
  Country: None (occurrence: None)
  Receive Date: 20061025
  Receipt Date: 20060809
  Transmission Date: 20070319
  Serious: Yes (Other)
  Sender: FDA-Public Use
  Company Number: 2006UW15938

PATIENT
  Age: 47 Year
  Sex: Female
  Weight: 72.6 kg

DRUGS (7)
  1. ZOLADEX [Suspect]
     Indication: BREAST CANCER
     Route: 058
     Dates: start: 20060601
  2. ZIPRAOFLORIN [Concomitant]
  3. PHENAZOPRID [Concomitant]
  4. XANAX [Concomitant]
  5. CYMBALTA [Concomitant]
  6. SUDAFED 12 HOUR [Concomitant]
  7. ALLEGRA [Concomitant]

REACTIONS (7)
  - ARTHRALGIA [None]
  - BACK PAIN [None]
  - GASTROOESOPHAGEAL REFLUX DISEASE [None]
  - SLEEP DISORDER [None]
  - THROAT TIGHTNESS [None]
  - URINARY TRACT INFECTION [None]
  - VERTIGO [None]
